FAERS Safety Report 22239963 (Version 2)
Quarter: 2024Q1

REPORT INFORMATION
  Report Type: Spontaneous
  Country: AU (occurrence: AU)
  Receive Date: 20230421
  Receipt Date: 20240117
  Transmission Date: 20240410
  Serious: Yes (Other)
  Sender: FDA-Public Use
  Company Number: AU-BAUSCHBL-2023BNL003422

PATIENT
  Age: 68 Year
  Sex: Male

DRUGS (19)
  1. DEXAMETHASONE [Suspect]
     Active Substance: DEXAMETHASONE
     Indication: Richter^s syndrome
     Route: 065
     Dates: start: 20221110, end: 20221202
  2. PREDNISOLONE [Suspect]
     Active Substance: PREDNISOLONE
     Indication: Richter^s syndrome
     Route: 065
     Dates: start: 20220905, end: 20221017
  3. CYCLOPHOSPHAMIDE [Suspect]
     Active Substance: CYCLOPHOSPHAMIDE
     Indication: Richter^s syndrome
     Route: 065
     Dates: start: 20220905, end: 20221017
  4. DOXORUBICIN HYDROCHLORIDE [Suspect]
     Active Substance: DOXORUBICIN HYDROCHLORIDE
     Indication: Richter^s syndrome
     Route: 065
     Dates: start: 20220905, end: 20221017
  5. PIRTOBRUTINIB [Suspect]
     Active Substance: PIRTOBRUTINIB
     Indication: Richter^s syndrome
     Route: 065
  6. CARBOPLATIN [Suspect]
     Active Substance: CARBOPLATIN
     Indication: Richter^s syndrome
     Route: 065
     Dates: start: 20221110, end: 20221202
  7. CARBOPLATIN [Suspect]
     Active Substance: CARBOPLATIN
     Route: 065
     Dates: start: 202212
  8. CISPLATIN [Suspect]
     Active Substance: CISPLATIN
     Indication: Richter^s syndrome
     Route: 065
  9. CYTARABINE [Suspect]
     Active Substance: CYTARABINE
     Indication: Richter^s syndrome
     Route: 065
     Dates: start: 20221110, end: 20221202
  10. ETOPOSIDE [Suspect]
     Active Substance: ETOPOSIDE
     Indication: Richter^s syndrome
     Route: 065
     Dates: start: 202212
  11. FLUDARABINE PHOSPHATE [Suspect]
     Active Substance: FLUDARABINE PHOSPHATE
     Indication: Richter^s syndrome
     Route: 065
     Dates: start: 20130101, end: 20130601
  12. IFOSFAMIDE [Suspect]
     Active Substance: IFOSFAMIDE
     Indication: Richter^s syndrome
     Route: 065
     Dates: start: 202212
  13. RITUXIMAB [Suspect]
     Active Substance: RITUXIMAB
     Indication: Richter^s syndrome
     Route: 065
     Dates: start: 20220905, end: 20221017
  14. VENETOCLAX [Suspect]
     Active Substance: VENETOCLAX
     Indication: Richter^s syndrome
     Route: 065
     Dates: start: 20201202, end: 20220801
  15. ZANUBRUTINIB [Suspect]
     Active Substance: ZANUBRUTINIB
     Indication: Richter^s syndrome
     Route: 065
     Dates: start: 20150101, end: 20201201
  16. VINCRISTINE SULFATE [Suspect]
     Active Substance: VINCRISTINE SULFATE
     Indication: Richter^s syndrome
     Route: 065
     Dates: start: 20220905, end: 20221017
  17. SULFAMETHOXAZOLE\TRIMETHOPRIM [Concomitant]
     Active Substance: SULFAMETHOXAZOLE\TRIMETHOPRIM
     Indication: Product used for unknown indication
  18. PANTOPRAZOLE [Concomitant]
     Active Substance: PANTOPRAZOLE
     Indication: Product used for unknown indication
  19. VALACYCLOVIR HYDROCHLORIDE [Concomitant]
     Active Substance: VALACYCLOVIR HYDROCHLORIDE
     Indication: Product used for unknown indication

REACTIONS (8)
  - Cytokine release syndrome [Recovered/Resolved]
  - Chronic lymphocytic leukaemia [Unknown]
  - Hypogammaglobulinaemia [Unknown]
  - Pancytopenia [Unknown]
  - Prostate cancer [Unknown]
  - Dysplasia [Unknown]
  - Herpes virus infection [Unknown]
  - Disease progression [Unknown]

NARRATIVE: CASE EVENT DATE: 20140101
